FAERS Safety Report 5145013-X (Version None)
Quarter: 2006Q4

REPORT INFORMATION
  Report Type: 
  Country: None (occurrence: None)
  Receive Date: 20061107
  Receipt Date: 20061011
  Transmission Date: 20070319
  Serious: Yes (Other)
  Sender: FDA-Public Use
  Company Number: PHEH2006US12863

PATIENT
  Age: 55 Year
  Sex: Female

DRUGS (4)
  1. FLUOROURACIL W/LEUCOVORIN/OXALIPLATIN [Concomitant]
     Indication: RECTAL CANCER
     Dates: start: 20051101, end: 20060701
  2. AVASTIN [Concomitant]
     Indication: RECTAL CANCER
     Dosage: 5 MG/KG, UNK
     Route: 042
     Dates: start: 20051130
  3. IRINOTECAN + 5-FU + LEUCOVORIN [Concomitant]
     Indication: RECTAL CANCER
     Dosage: UNK, UNK
     Dates: start: 20060727
  4. ZOMETA [Suspect]
     Indication: METASTASES TO BONE
     Dosage: 4 MG Q 4 WEEKS
     Dates: start: 20051101, end: 20060801

REACTIONS (7)
  - ANAEMIA [None]
  - BONE DISORDER [None]
  - BONE LESION [None]
  - NEUROPATHY [None]
  - OSTEONECROSIS [None]
  - PAIN IN JAW [None]
  - TOOTH DISORDER [None]
